FAERS Safety Report 10105286 (Version 2)
Quarter: 2014Q2

REPORT INFORMATION
  Report Type: Other
  Country: US (occurrence: US)
  Receive Date: 20140424
  Receipt Date: 20140613
  Transmission Date: 20141212
  Serious: Yes (Hospitalization, Other)
  Sender: FDA-Public Use
  Company Number: US-GSKPPD-2014GSK001136

PATIENT
  Age: 77 Year
  Sex: Male

DRUGS (6)
  1. AVANDIA [Suspect]
     Indication: DIABETES MELLITUS
     Route: 048
     Dates: start: 200506, end: 200808
  2. NORVASC [Concomitant]
     Route: 048
  3. LASIX [Concomitant]
     Indication: DIABETES MELLITUS
     Route: 048
  4. LISINOPRIL [Concomitant]
     Route: 048
  5. METOPROLOL XL [Concomitant]
     Route: 048
  6. ASPIRIN [Concomitant]
     Route: 048

REACTIONS (1)
  - Coronary artery bypass [Recovered/Resolved]
